FAERS Safety Report 5463594-3 (Version None)
Quarter: 2007Q3

REPORT INFORMATION
  Report Type: 
  Country: None (occurrence: None)
  Receive Date: 20070920
  Receipt Date: 20070918
  Transmission Date: 20080115
  Serious: Yes (Hospitalization)
  Sender: FDA-Public Use
  Company Number: US-ROXANE LABORATORIES, INC-2007-DE-05617GD

PATIENT
  Age: 20 Year
  Sex: Female

DRUGS (8)
  1. HYDROCORTISONE [Suspect]
     Indication: SYSTEMIC LUPUS ERYTHEMATOSUS
     Route: 042
  2. HYDROCORTISONE [Suspect]
     Indication: LUPUS NEPHRITIS
  3. PREDNISONE [Suspect]
     Indication: SYSTEMIC LUPUS ERYTHEMATOSUS
  4. PREDNISONE [Suspect]
     Indication: LUPUS NEPHRITIS
  5. METHYLPREDNISOLONE [Suspect]
     Indication: SYSTEMIC LUPUS ERYTHEMATOSUS
     Route: 042
  6. METHYLPREDNISOLONE [Suspect]
     Indication: LUPUS NEPHRITIS
  7. CELLCEPT [Suspect]
     Indication: SYSTEMIC LUPUS ERYTHEMATOSUS
  8. CELLCEPT [Suspect]
     Indication: LUPUS NEPHRITIS

REACTIONS (8)
  - BACTERAEMIA [None]
  - BLINDNESS CORTICAL [None]
  - BLOOD PRESSURE INCREASED [None]
  - CONVULSION [None]
  - GRAVITATIONAL OEDEMA [None]
  - HYPERTENSIVE ENCEPHALOPATHY [None]
  - REVERSIBLE POSTERIOR LEUKOENCEPHALOPATHY SYNDROME [None]
  - WEIGHT INCREASED [None]
